FAERS Safety Report 24751852 (Version 1)
Quarter: 2024Q4

REPORT INFORMATION
  Report Type: Spontaneous
  Country: GB (occurrence: GB)
  Receive Date: 20241219
  Receipt Date: 20241219
  Transmission Date: 20250115
  Serious: Yes (Other)
  Sender: EMD SERONO INC
  Company Number: GB-Merck Healthcare KGaA-2024065896

PATIENT
  Sex: Female

DRUGS (1)
  1. MAVENCLAD [Suspect]
     Active Substance: CLADRIBINE
     Indication: Multiple sclerosis
     Dosage: YEAR ONE WEEK ONE THERAPY: TAKE 2 TABLETS ON DAY ONE AND 1 TABLET ON DAYS 2 TO 5

REACTIONS (4)
  - Hysterectomy [Unknown]
  - Abdominal pain upper [Recovering/Resolving]
  - Multiple sclerosis relapse [Recovering/Resolving]
  - Multiple sclerosis [Recovering/Resolving]
